FAERS Safety Report 5815906-6 (Version None)
Quarter: 2008Q3

REPORT INFORMATION
  Report Type: 
  Country: None (occurrence: None)
  Receive Date: 20080716
  Receipt Date: 20070614
  Transmission Date: 20090109
  Serious: Yes (Hospitalization)
  Sender: FDA-Public Use
  Company Number: 2007-160043-NL

PATIENT
  Age: 53 Year
  Sex: Female

DRUGS (2)
  1. REMERON [Suspect]
     Indication: FACIAL PAIN
  2. COPAXONE [Suspect]
     Indication: MULTIPLE SCLEROSIS
     Dosage: SUBCUTANEOUS
     Route: 058
     Dates: start: 20070315

REACTIONS (3)
  - CONFUSIONAL STATE [None]
  - DIZZINESS [None]
  - SYNCOPE [None]
